FAERS Safety Report 7290625-0 (Version None)
Quarter: 2011Q1

REPORT INFORMATION
  Report Type: 
  Country: None (occurrence: None)
  Receive Date: 20110209
  Receipt Date: 20110209
  Transmission Date: 20110831
  Serious: Yes (Hospitalization)
  Sender: FDA-Public Use
  Company Number: None

PATIENT
  Sex: Male
  Weight: 101.7 kg

DRUGS (8)
  1. PEG-L-ASPARAGINASE (PEGASPARGASE, ONCOSPAR) [Suspect]
     Dosage: 11325 IU
     Dates: end: 20101123
  2. THIOGUANINE [Suspect]
     Dosage: 1920 MG
     Dates: end: 20101122
  3. VINCRISTINE SULFATE [Suspect]
     Dosage: 10 MG
     Dates: end: 20101130
  4. CYCLOPHOSPHAMIDE [Suspect]
     Dosage: 2280 MG
     Dates: end: 20101109
  5. DOXORUBICIN HYDROCHLORIDE [Suspect]
     Dosage: 170 MG
     Dates: end: 20101026
  6. DEXAMETHASONE [Suspect]
     Dosage: 315 MG
     Dates: end: 20101101
  7. METHOTREXATE [Suspect]
     Dosage: 45 MG
     Dates: end: 20101116
  8. CYTARABINE [Suspect]
     Dosage: 1364 MG
     Dates: end: 20101119

REACTIONS (3)
  - ACTIVATED PARTIAL THROMBOPLASTIN TIME PROLONGED [None]
  - HYPERTRIGLYCERIDAEMIA [None]
  - HYPERCHOLESTEROLAEMIA [None]
